FAERS Safety Report 21932999 (Version 6)
Quarter: 2023Q2

REPORT INFORMATION
  Report Type: Report from Study
  Country: FR (occurrence: FR)
  Receive Date: 20230131
  Receipt Date: 20230630
  Transmission Date: 20230722
  Serious: Yes (Life-Threatening, Hospitalization, Disabling)
  Sender: FDA-Public Use
  Company Number: FR-GILEAD-2023-0611450

PATIENT
  Age: 72 Year
  Sex: Female
  Weight: 55 kg

DRUGS (30)
  1. BREXUCABTAGENE AUTOLEUCEL [Suspect]
     Active Substance: BREXUCABTAGENE AUTOLEUCEL
     Indication: Mantle cell lymphoma
     Dosage: ^68^
     Route: 042
     Dates: start: 20221227, end: 20221227
  2. FLUDARABINE [Suspect]
     Active Substance: FLUDARABINE PHOSPHATE
     Indication: Bone marrow conditioning regimen
     Dosage: ^46.8^ QD
     Route: 042
     Dates: start: 20221221, end: 20221223
  3. CYCLOPHOSPHAMIDE [Suspect]
     Active Substance: CYCLOPHOSPHAMIDE
     Indication: Bone marrow conditioning regimen
     Dosage: ^780^ QD
     Route: 042
     Dates: start: 20221221, end: 20221223
  4. MESNA [Suspect]
     Active Substance: MESNA
     Indication: Prophylaxis
     Dosage: ^1800^, QD
     Route: 065
     Dates: start: 20221221, end: 20221223
  5. PREDNISONE [Suspect]
     Active Substance: PREDNISONE
     Indication: Product used for unknown indication
     Dosage: ^60^
     Route: 065
     Dates: start: 20221124, end: 20221130
  6. DOLIPRANE [Concomitant]
     Active Substance: ACETAMINOPHEN
     Dosage: 1,G,OTHER
     Route: 048
     Dates: start: 20221227, end: 20221229
  7. TRAMADOL HYDROCHLORIDE [Concomitant]
     Active Substance: TRAMADOL HYDROCHLORIDE
     Dosage: ND,MG,ONCE
     Route: 048
     Dates: start: 20221227, end: 20221227
  8. LOXOPROFEN SODIUM [Concomitant]
     Active Substance: LOXOPROFEN SODIUM
     Dosage: 20,MG,DAILY
     Route: 048
     Dates: start: 20221227
  9. ONDANSETRON [Concomitant]
     Active Substance: ONDANSETRON
     Dosage: 8,MG,DAILY
     Route: 048
     Dates: start: 20221228, end: 20221230
  10. PIPERACILLIN SODIUM\TAZOBACTAM SODIUM [Concomitant]
     Active Substance: PIPERACILLIN SODIUM\TAZOBACTAM SODIUM
     Dosage: 16,OTHER,CONTINUOUS
     Route: 042
     Dates: start: 20221228
  11. ACYCLOVIR [Concomitant]
     Active Substance: ACYCLOVIR
     Indication: Herpes simplex
     Dosage: ND,MG,DAILY
     Route: 062
     Dates: start: 20221228, end: 20230101
  12. ACYCLOVIR [Concomitant]
     Active Substance: ACYCLOVIR
     Dosage: 600 MG X 3 DAYS
     Route: 042
  13. WHOLE BLOOD [Concomitant]
     Active Substance: WHOLE BLOOD
     Dosage: 1,OTHER,ONCE
     Route: 042
     Dates: start: 20221229, end: 20221229
  14. PERFALGAN [Concomitant]
     Active Substance: ACETAMINOPHEN
     Dosage: 500,MG,FOUR TIMES DAILY
     Route: 048
     Dates: start: 20221229
  15. TINZAPARIN SODIUM [Concomitant]
     Active Substance: TINZAPARIN SODIUM
     Dosage: ND,MG,DAILY
     Route: 058
     Dates: start: 20221229
  16. SODIUM CHLORIDE [Concomitant]
     Active Substance: SODIUM CHLORIDE
     Dosage: 500,OTHER,CONTINUOUS
     Route: 042
     Dates: start: 20221230
  17. TRIMEBUTINE [Concomitant]
     Active Substance: TRIMEBUTINE
     Dosage: ND,MG,DAILY
     Route: 048
     Dates: start: 20221230, end: 20221231
  18. TRAMADOL [Concomitant]
     Active Substance: TRAMADOL
     Dosage: 50,MG,ONCE
     Route: 048
     Dates: start: 20221230, end: 20221230
  19. PLATELETS [Concomitant]
     Active Substance: HUMAN PLATELET, ALLOGENIC
     Dosage: 1,OTHER,ONCE
     Route: 042
     Dates: start: 20221230, end: 20221230
  20. FUROSEMIDE [Concomitant]
     Active Substance: FUROSEMIDE
     Dosage: 60,MG,DAILY
     Route: 042
     Dates: start: 20221231
  21. METHYLPREDNISOLONE [Concomitant]
     Active Substance: METHYLPREDNISOLONE
     Dosage: 60,MG,ONCE
     Route: 042
     Dates: start: 20230101, end: 20230101
  22. OXYGEN [Concomitant]
     Active Substance: OXYGEN
     Dosage: 2,L,CONTINUOUS
     Route: 055
     Dates: start: 20230101, end: 20230101
  23. XALATAN [Concomitant]
     Active Substance: LATANOPROST
     Dosage: ND,MG,DAILY
     Route: 031
     Dates: start: 20230101
  24. COSOPT [Concomitant]
     Active Substance: DORZOLAMIDE HYDROCHLORIDE\TIMOLOL MALEATE
     Dosage: ND,MG,DAILY
     Route: 031
     Dates: start: 20230101
  25. LOPERAMIDE HYDROCHLORIDE [Concomitant]
     Active Substance: LOPERAMIDE HYDROCHLORIDE
     Dosage: ND,MG,DAILY
     Route: 031
     Dates: start: 20230101
  26. PILOCARPINE [Concomitant]
     Active Substance: PILOCARPINE
     Dosage: ND,MG,DAILY
     Route: 031
     Dates: start: 20230101
  27. MANNITOL [Concomitant]
     Active Substance: MANNITOL
     Dosage: ND,ML,DAILY
     Route: 042
     Dates: start: 20230101
  28. KEPPRA [Concomitant]
     Active Substance: LEVETIRACETAM
     Dosage: 250,MG,DAILY
     Route: 042
     Dates: start: 20230101
  29. VITAMIN B [Concomitant]
     Active Substance: VITAMIN B
     Dosage: 1,G,ONCE
     Route: 042
     Dates: start: 20230101, end: 20230101
  30. CORDARONE [Concomitant]
     Active Substance: AMIODARONE HYDROCHLORIDE
     Dosage: ND,MG,DAILY
     Route: 042
     Dates: start: 20230102

REACTIONS (7)
  - Oxygen saturation decreased [Recovered/Resolved]
  - Generalised tonic-clonic seizure [Recovered/Resolved]
  - Dyspnoea [Not Recovered/Not Resolved]
  - Haematoma muscle [Not Recovered/Not Resolved]
  - Cytokine release syndrome [Recovered/Resolved]
  - Pyrexia [Recovered/Resolved]
  - Nervous system disorder [Recovered/Resolved with Sequelae]

NARRATIVE: CASE EVENT DATE: 20221227
